FAERS Safety Report 9442860 (Version 4)
Quarter: 2013Q4

REPORT INFORMATION
  Report Type: Spontaneous
  Country: RU (occurrence: RU)
  Receive Date: 20130806
  Receipt Date: 20131223
  Transmission Date: 20140711
  Serious: Yes (Life-Threatening, Hospitalization, Other)
  Sender: FDA-Public Use
  Company Number: RU-009507513-1308RUS002402

PATIENT
  Sex: Male
  Weight: 20 kg

DRUGS (4)
  1. SINGULAIR [Suspect]
     Indication: ASTHMA
     Dosage: 4 MG, HS
     Route: 048
     Dates: start: 20111111
  2. BERODUAL [Concomitant]
     Indication: ASTHMA
     Dosage: 15 GTT, Q6H
     Dates: start: 20110311
  3. PULMICORT [Concomitant]
     Dosage: 1 DOSE, Q6H
  4. ZYRTEC [Concomitant]
     Dosage: 15 GTT, QD

REACTIONS (3)
  - Brain neoplasm [Recovered/Resolved]
  - Brain tumour operation [Unknown]
  - Ependymoma malignant [Unknown]
